FAERS Safety Report 17189830 (Version 1)
Quarter: 2019Q4

REPORT INFORMATION
  Report Type: Spontaneous
  Country: US (occurrence: US)
  Receive Date: 20191223
  Receipt Date: 20191223
  Transmission Date: 20200122
  Serious: No
  Sender: FDA-Public Use
  Company Number: US-JNJFOC-20191216516

PATIENT
  Sex: Female
  Weight: 45.4 kg

DRUGS (1)
  1. PEPCID AC MAXIMUM STRENGTH [Suspect]
     Active Substance: FAMOTIDINE
     Indication: GASTRIC DISORDER
     Dosage: 1 TABLET ONE TIME
     Route: 065
     Dates: start: 20191206, end: 20191206

REACTIONS (4)
  - Abdominal rigidity [Not Recovered/Not Resolved]
  - Pruritus [Not Recovered/Not Resolved]
  - Dysphagia [Not Recovered/Not Resolved]
  - Urticaria [Not Recovered/Not Resolved]

NARRATIVE: CASE EVENT DATE: 20191206
